FAERS Safety Report 13713653 (Version 2)
Quarter: 2017Q3

REPORT INFORMATION
  Report Type: Report from Study
  Country: None (occurrence: US)
  Receive Date: 20170704
  Receipt Date: 20170917
  Transmission Date: 20171127
  Serious: Yes (Hospitalization, Other)
  Sender: FDA-Public Use
  Company Number: US-ABBVIE-17K-163-1854000-00

PATIENT
  Sex: Female

DRUGS (3)
  1. JANUMET [Concomitant]
     Active Substance: METFORMIN HYDROCHLORIDE\SITAGLIPTIN PHOSPHATE
     Indication: PRODUCT USED FOR UNKNOWN INDICATION
  2. HUMIRA [Suspect]
     Active Substance: ADALIMUMAB
     Indication: PSORIATIC ARTHROPATHY
     Route: 058
     Dates: start: 2015, end: 201611
  3. BENICAR [Concomitant]
     Active Substance: OLMESARTAN MEDOXOMIL
     Indication: PRODUCT USED FOR UNKNOWN INDICATION

REACTIONS (8)
  - Cartilage atrophy [Recovered/Resolved]
  - Sinusitis [Recovering/Resolving]
  - Procedural pain [Recovered/Resolved]
  - Hyperventilation [Not Recovered/Not Resolved]
  - Nasopharyngitis [Recovered/Resolved]
  - Arthralgia [Unknown]
  - Psoriasis [Not Recovered/Not Resolved]
  - Exostosis [Recovered/Resolved]

NARRATIVE: CASE EVENT DATE: 2016
